FAERS Safety Report 6497238-9 (Version None)
Quarter: 2009Q4

REPORT INFORMATION
  Report Type: 
  Country: None (occurrence: None)
  Receive Date: 20091215
  Receipt Date: 20090831
  Transmission Date: 20100525
  Serious: No
  Sender: FDA-Public Use
  Company Number: A0796394A

PATIENT
  Age: 78 Year
  Sex: Male

DRUGS (9)
  1. AVODART [Suspect]
     Dosage: 1CAP PER DAY
     Route: 048
     Dates: start: 20030101, end: 20090722
  2. CELLCEPT [Concomitant]
  3. NORVASC [Concomitant]
  4. HYDROCHLOROTHIAZIDE [Concomitant]
  5. PREDNISONE [Concomitant]
  6. BENICAR [Concomitant]
  7. ENALAPRIL [Concomitant]
  8. TYLENOL (CAPLET) [Concomitant]
  9. GLUCOSAMINE [Concomitant]

REACTIONS (3)
  - BREAST ENLARGEMENT [None]
  - BREAST SWELLING [None]
  - NIPPLE PAIN [None]
